FAERS Safety Report 21381649 (Version 1)
Quarter: 2022Q3

REPORT INFORMATION
  Report Type: Spontaneous
  Country: US (occurrence: None)
  Receive Date: 20220926
  Receipt Date: 20220926
  Transmission Date: 20221026
  Serious: Yes (Other)
  Sender: FDA-Public Use
  Company Number: None

PATIENT
  Age: 33 Year
  Sex: Female
  Weight: 74.7 kg

DRUGS (1)
  1. LUPRON DEPOT [Suspect]
     Active Substance: LEUPROLIDE ACETATE
     Indication: Premenstrual dysphoric disorder
     Dosage: OTHER QUANTITY : 1 INJECTION(S);?OTHER FREQUENCY : 1/MONTH;?
     Route: 030
     Dates: start: 20220826, end: 20220826

REACTIONS (9)
  - Pain in extremity [None]
  - Chest pain [None]
  - Arthralgia [None]
  - Fatigue [None]
  - Suicidal ideation [None]
  - Neuropathy peripheral [None]
  - Fibromyalgia [None]
  - Impaired work ability [None]
  - Menopause [None]

NARRATIVE: CASE EVENT DATE: 20220828
